FAERS Safety Report 12111840 (Version 4)
Quarter: 2016Q2

REPORT INFORMATION
  Report Type: Report from Study
  Country: US (occurrence: US)
  Receive Date: 20160224
  Receipt Date: 20160617
  Transmission Date: 20160815
  Serious: Yes (Hospitalization)
  Sender: FDA-Public Use
  Company Number: US-BIOGEN-2015BI118938

PATIENT
  Age: 49 Year
  Sex: Female

DRUGS (1)
  1. TYSABRI [Suspect]
     Active Substance: NATALIZUMAB
     Indication: MULTIPLE SCLEROSIS
     Route: 042
     Dates: start: 20100107, end: 20151215

REACTIONS (16)
  - Urinary tract infection [Recovered/Resolved]
  - Joint lock [Unknown]
  - Balance disorder [Unknown]
  - Gait disturbance [Not Recovered/Not Resolved]
  - Type 2 diabetes mellitus [Not Recovered/Not Resolved]
  - Anxiety [Not Recovered/Not Resolved]
  - Fear [Recovered/Resolved]
  - Stress [Not Recovered/Not Resolved]
  - Multiple sclerosis relapse [Unknown]
  - Feeling cold [Recovered/Resolved]
  - Fall [Recovered/Resolved]
  - Frustration tolerance decreased [Not Recovered/Not Resolved]
  - Mobility decreased [Recovered/Resolved]
  - Nerve injury [Unknown]
  - Joint dislocation [Recovered/Resolved]
  - Joint injury [Recovered/Resolved]

NARRATIVE: CASE EVENT DATE: 2015
